FAERS Safety Report 9866443 (Version 2)
Quarter: 2014Q1

REPORT INFORMATION
  Report Type: Report from Study
  Country: NL (occurrence: NL)
  Receive Date: 20140204
  Receipt Date: 20140320
  Transmission Date: 20141002
  Serious: Yes (Hospitalization)
  Sender: FDA-Public Use
  Company Number: NL-ROCHE-1343432

PATIENT
  Age: 73 Year
  Sex: Male
  Weight: 77 kg

DRUGS (9)
  1. RANIBIZUMAB [Suspect]
     Indication: RETINAL VEIN OCCLUSION
     Dosage: MOST RECENT DOSE OF STUDY MEDICATION PRIOR TO THE ONSET OF EVENT ON 07 NOV 2013
     Route: 050
     Dates: start: 20130314
  2. ESOMEPRAZOLE [Concomitant]
  3. AMLODIPINE [Concomitant]
     Route: 065
     Dates: start: 20130115
  4. VALSARTAN [Concomitant]
  5. HYDROCHLOROTHIAZIDE [Concomitant]
     Route: 065
     Dates: start: 20000723
  6. LATANOPROST [Concomitant]
     Route: 065
     Dates: start: 20130808
  7. ACETYLSALICYLIC ACID [Concomitant]
     Route: 065
     Dates: start: 20131209
  8. SIMVASTATINE [Concomitant]
     Route: 065
     Dates: start: 20131209
  9. BISOPROLOL [Concomitant]
     Route: 065
     Dates: start: 20140108

REACTIONS (2)
  - Myocardial ischaemia [Recovering/Resolving]
  - Arteriosclerosis coronary artery [Recovered/Resolved]
